FAERS Safety Report 9317812 (Version 1)
Quarter: 2013Q2

REPORT INFORMATION
  Report Type: Spontaneous
  Country: US (occurrence: US)
  Receive Date: 20130530
  Receipt Date: 20130530
  Transmission Date: 20140414
  Serious: Yes (Other)
  Sender: FDA-Public Use
  Company Number: US-FRI-1000045283

PATIENT
  Age: 48 Year
  Sex: Male
  Weight: 102.27 kg

DRUGS (7)
  1. VIIBRYD [Suspect]
  2. DEPAKOTE ER [Suspect]
     Indication: CONVULSION
     Dosage: 2 TABLET
     Dates: start: 201210
  3. DEPAKOTE ER [Suspect]
     Indication: HEADACHE
  4. PROZAC [Concomitant]
     Indication: DEPRESSION
  5. PROTONIX [Concomitant]
     Indication: GASTROOESOPHAGEAL REFLUX DISEASE
  6. ADVIL [Concomitant]
  7. LIFEPACK NANO VITAMIN PACK [Concomitant]
     Indication: SUPPLEMENTATION THERAPY

REACTIONS (3)
  - Convulsion [Unknown]
  - Blood alcohol increased [Recovered/Resolved]
  - Headache [Unknown]
